FAERS Safety Report 5463874-1 (Version None)
Quarter: 2007Q3

REPORT INFORMATION
  Report Type: 
  Country: None (occurrence: None)
  Receive Date: 20070712
  Receipt Date: 20060714
  Transmission Date: 20080115
  Serious: Yes (Hospitalization)
  Sender: FDA-Public Use
  Company Number: 200610366

PATIENT
  Age: 62 Year
  Sex: Female

DRUGS (2)
  1. CARIMUNE NF (CSL BEHRING) [Suspect]
     Dosage: 27 G DAILY IV; 27 G Q1MO IV
     Route: 042
     Dates: start: 20060425, end: 20060425
  2. CARIMUNE NF (CSL BEHRING) [Suspect]
     Dosage: 27 G DAILY IV; 27 G Q1MO IV
     Route: 042
     Dates: start: 20060523, end: 20060523

REACTIONS (2)
  - ERYTHEMA MULTIFORME [None]
  - RASH GENERALISED [None]
